FAERS Safety Report 7544039-6 (Version None)
Quarter: 2011Q2

REPORT INFORMATION
  Report Type: 
  Country: None (occurrence: None)
  Receive Date: 20110613
  Receipt Date: 20050720
  Transmission Date: 20111010
  Serious: Yes (Other)
  Sender: FDA-Public Use
  Company Number: PHHO2005BR11659

PATIENT
  Age: 59 Year
  Sex: Male

DRUGS (3)
  1. EXFORGE [Suspect]
     Dosage: 160 MG/5MG, QD
     Route: 048
     Dates: start: 20050720
  2. CAPTOPRIL [Concomitant]
  3. DIOVAN [Suspect]
     Indication: HYPERTENSION
     Dosage: 160 MG, QD
     Route: 048

REACTIONS (3)
  - DRUG INEFFECTIVE [None]
  - PNEUMONIA [None]
  - URINARY TRACT INFECTION [None]
